FAERS Safety Report 21764090 (Version 1)
Quarter: 2022Q4

REPORT INFORMATION
  Report Type: Spontaneous
  Country: FR (occurrence: FR)
  Receive Date: 20221222
  Receipt Date: 20221222
  Transmission Date: 20230112
  Serious: Yes (Death)
  Sender: FDA-Public Use
  Company Number: FR-BAXTER-2022BAX026259

PATIENT
  Age: 81 Year
  Sex: Female

DRUGS (2)
  1. BORTEZOMIB [Suspect]
     Active Substance: BORTEZOMIB
     Indication: Product used for unknown indication
     Dosage: 2.5 MG/DOSE 1 DOSE(S)/WEEK 4 WEEK(S)/CYCLE, (TREATMENT LINE NUMBER 1, DURATION: 1.3 MONTHS)
     Route: 065
  2. CYCLOPHOSPHAMIDE [Suspect]
     Active Substance: CYCLOPHOSPHAMIDE
     Indication: Product used for unknown indication
     Dosage: 300 MG/DOSE 1 DOSE(S)/WEEK 2 WEEK(S)/CYCLE, (TREATMENT LINE NUMBER 1, DURATION: 1.3 MONTHS)
     Route: 065

REACTIONS (1)
  - Disease progression [Fatal]
